FAERS Safety Report 8431577-7 (Version None)
Quarter: 2012Q2

REPORT INFORMATION
  Report Type: 
  Country: None (occurrence: None)
  Receive Date: 20120607
  Receipt Date: 20120607
  Transmission Date: 20120825
  Serious: No
  Sender: FDA-Public Use
  Company Number: None

PATIENT
  Sex: Male
  Weight: 68.0396 kg

DRUGS (7)
  1. LEVEMIR [Suspect]
     Indication: DIABETES MELLITUS
     Dosage: 3 UNITS AM 1X DAY INJECTION; 5.5-8 UNITS PM, 1 X DAY, INJECTION
     Dates: start: 20120206, end: 20120217
  2. ENALAPRIL MALEATE [Concomitant]
  3. ASPIRIN [Concomitant]
  4. HUMALOG [Concomitant]
  5. GLUCOSAMINE [Concomitant]
  6. REGULAR INSULIN [Concomitant]
  7. IBUPROFEN [Concomitant]

REACTIONS (3)
  - DRUG EFFECT DECREASED [None]
  - BLOOD GLUCOSE INCREASED [None]
  - BINGE EATING [None]
